FAERS Safety Report 14769024 (Version 1)
Quarter: 2018Q2

REPORT INFORMATION
  Report Type: Spontaneous
  Country: US (occurrence: US)
  Receive Date: 20180417
  Receipt Date: 20180417
  Transmission Date: 20180711
  Serious: No
  Sender: FDA-Public Use
  Company Number: US-LEXICON PHARMACEUTICALS, INC-18-1606-00319

PATIENT
  Sex: Female

DRUGS (5)
  1. DOXYCYCLINE. [Concomitant]
     Active Substance: DOXYCYCLINE
  2. LANREOTIDE [Concomitant]
     Active Substance: LANREOTIDE
  3. STEROID SHOT [Concomitant]
     Active Substance: UNSPECIFIED INGREDIENT
  4. TELOTRISTAT ETHYL [Suspect]
     Active Substance: TELOTRISTAT ETHYL
     Indication: CARCINOID TUMOUR
     Route: 048
     Dates: start: 20171027, end: 201711
  5. TELOTRISTAT ETHYL [Suspect]
     Active Substance: TELOTRISTAT ETHYL
     Indication: CARCINOID TUMOUR
     Route: 048
     Dates: start: 201711

REACTIONS (4)
  - Asthenia [Unknown]
  - Flushing [Unknown]
  - Diarrhoea [Unknown]
  - Fatigue [Unknown]
